FAERS Safety Report 18223540 (Version 1)
Quarter: 2020Q3

REPORT INFORMATION
  Report Type: Spontaneous
  Country: FR (occurrence: FR)
  Receive Date: 20200902
  Receipt Date: 20200902
  Transmission Date: 20201103
  Serious: Yes (Hospitalization)
  Sender: FDA-Public Use
  Company Number: FR-ROCHE-2669990

PATIENT
  Age: 5 Year
  Sex: Male
  Weight: 20.5 kg

DRUGS (14)
  1. PANTOPRAZOLE [Concomitant]
     Active Substance: PANTOPRAZOLE
  2. ONDANSETRON [Concomitant]
     Active Substance: ONDANSETRON
  3. CELLCEPT [Suspect]
     Active Substance: MYCOPHENOLATE MOFETIL\MYCOPHENOLATE MOFETIL HYDROCHLORIDE
     Indication: PROPHYLAXIS AGAINST GRAFT VERSUS HOST DISEASE
     Route: 042
     Dates: start: 20200511, end: 202007
  4. AMLODIPINE [Concomitant]
     Active Substance: AMLODIPINE BESYLATE
  5. VANCOMYCINE [Concomitant]
     Active Substance: VANCOMYCIN
  6. NALBUPHINE [Concomitant]
     Active Substance: NALBUPHINE
  7. PLITICAN [Concomitant]
     Active Substance: ALIZAPRIDE HYDROCHLORIDE
  8. MALOCIDE (FRANCE) [Concomitant]
  9. METHYLPREDNISOLONE. [Concomitant]
     Active Substance: METHYLPREDNISOLONE
  10. NEORAL [Suspect]
     Active Substance: CYCLOSPORINE
     Indication: PROPHYLAXIS AGAINST GRAFT VERSUS HOST DISEASE
     Route: 048
     Dates: start: 20200511, end: 20200713
  11. ADIAZINE [Concomitant]
     Active Substance: SULFADIAZINE
  12. ZOVIRAX [Concomitant]
     Active Substance: ACYCLOVIR
  13. URSOFALK [Concomitant]
     Active Substance: URSODIOL
  14. PREVYMIS [Concomitant]
     Active Substance: LETERMOVIR

REACTIONS (1)
  - Thrombotic microangiopathy [Recovering/Resolving]

NARRATIVE: CASE EVENT DATE: 20200707
